FAERS Safety Report 9251750 (Version 1)
Quarter: 2013Q2

REPORT INFORMATION
  Report Type: Spontaneous
  Country: DE (occurrence: DE)
  Receive Date: 20130424
  Receipt Date: 20130424
  Transmission Date: 20140414
  Serious: Yes (Other)
  Sender: FDA-Public Use
  Company Number: DE-MERCK-1304DEU013438

PATIENT
  Age: 70 Year
  Sex: Male

DRUGS (2)
  1. EZETROL 10 MG TABLETTEN [Suspect]
     Indication: HYPERCHOLESTEROLAEMIA
     Dosage: 10 MG, ONCE A DAY
     Route: 048
     Dates: end: 201210
  2. SORTIS [Concomitant]
     Indication: HYPERCHOLESTEROLAEMIA
     Dosage: UNK
     Route: 048

REACTIONS (3)
  - Visual field defect [Recovered/Resolved]
  - Abdominal distension [Recovered/Resolved]
  - Arrhythmia [Recovered/Resolved]
